FAERS Safety Report 7108918-6 (Version None)
Quarter: 2010Q4

REPORT INFORMATION
  Report Type: 
  Country: None (occurrence: None)
  Receive Date: 20101117
  Receipt Date: 20101025
  Transmission Date: 20110411
  Serious: Yes (Hospitalization)
  Sender: FDA-Public Use
  Company Number: US-BAYER-201016124NA

PATIENT
  Age: 22 Year
  Sex: Female
  Weight: 109 kg

DRUGS (2)
  1. YAZ [Suspect]
     Indication: CONTRACEPTION
     Dosage: 1 TAB
     Dates: start: 20070101, end: 20070801
  2. PREVACID [Concomitant]
     Indication: ABDOMINAL PAIN UPPER

REACTIONS (5)
  - ABDOMINAL PAIN [None]
  - ABDOMINAL TENDERNESS [None]
  - NAUSEA [None]
  - PANCREATITIS [None]
  - VOMITING [None]
